FAERS Safety Report 10388682 (Version 1)
Quarter: 2014Q3

REPORT INFORMATION
  Report Type: Spontaneous
  Country: US (occurrence: US)
  Receive Date: 20140816
  Receipt Date: 20140816
  Transmission Date: 20150326
  Serious: No
  Sender: FDA-Public Use
  Company Number: US-GILEAD-2014-0112213

PATIENT
  Age: 55 Year
  Sex: Male

DRUGS (4)
  1. RIBAVIRIN. [Concomitant]
     Active Substance: RIBAVIRIN
  2. SOVALDI [Suspect]
     Active Substance: SOFOSBUVIR
     Dosage: UNK UNK, QD
     Route: 065
     Dates: start: 20140724
  3. SOVALDI [Suspect]
     Active Substance: SOFOSBUVIR
     Indication: HEPATITIS C
     Dosage: 1 DF, BID
     Route: 065
  4. PEGASYS [Concomitant]
     Active Substance: PEGINTERFERON ALFA-2A

REACTIONS (1)
  - Overdose [Unknown]
